FAERS Safety Report 7817459-X (Version None)
Quarter: 2011Q4

REPORT INFORMATION
  Report Type: 
  Country: None (occurrence: None)
  Receive Date: 20111017
  Receipt Date: 20110927
  Transmission Date: 20120403
  Serious: Yes (Other)
  Sender: FDA-Public Use
  Company Number: US-ROCHE-1004357

PATIENT
  Sex: Male

DRUGS (2)
  1. AVASTIN [Suspect]
     Indication: LUNG NEOPLASM MALIGNANT
     Dosage: UNKNOWN
  2. AVASTIN [Suspect]
     Indication: OESOPHAGEAL CARCINOMA

REACTIONS (1)
  - OESOPHAGEAL CARCINOMA [None]
